FAERS Safety Report 15826593 (Version 1)
Quarter: 2019Q1

REPORT INFORMATION
  Report Type: Spontaneous
  Country: US (occurrence: US)
  Receive Date: 20190115
  Receipt Date: 20190115
  Transmission Date: 20190417
  Serious: No
  Sender: FDA-Public Use
  Company Number: US-BAUSCH-BL-2018-008815

PATIENT
  Age: 56 Year
  Sex: Female
  Weight: 57.66 kg

DRUGS (4)
  1. ZYLET [Suspect]
     Active Substance: LOTEPREDNOL ETABONATE\TOBRAMYCIN
     Indication: GIANT PAPILLARY CONJUNCTIVITIS
     Dosage: IN THE RIGHT EYE
     Route: 047
     Dates: start: 20180320, end: 20180324
  2. LOTEMAX [Suspect]
     Active Substance: LOTEPREDNOL ETABONATE
     Indication: EYE INFLAMMATION
     Dosage: IN THE RIGHT EYE
     Route: 047
     Dates: start: 20180326
  3. VITAMIN D [Concomitant]
     Active Substance: CHOLECALCIFEROL
     Indication: PRODUCT USED FOR UNKNOWN INDICATION
  4. VAGIFEM [Concomitant]
     Active Substance: ESTRADIOL
     Indication: PRODUCT USED FOR UNKNOWN INDICATION

REACTIONS (3)
  - Ocular hyperaemia [Recovering/Resolving]
  - Blepharitis [Unknown]
  - Eye discharge [Unknown]

NARRATIVE: CASE EVENT DATE: 20180323
